FAERS Safety Report 7957665-7 (Version None)
Quarter: 2011Q4

REPORT INFORMATION
  Report Type: 
  Country: None (occurrence: None)
  Receive Date: 20111205
  Receipt Date: 20111122
  Transmission Date: 20120403
  Serious: Yes (Hospitalization, Other)
  Sender: FDA-Public Use
  Company Number: PHEH2011US07641

PATIENT
  Sex: Male
  Weight: 72.122 kg

DRUGS (13)
  1. CLOZARIL [Suspect]
     Indication: SCHIZOPHRENIA
     Route: 048
     Dates: start: 20111005, end: 20111016
  2. OLANZAPINE [Concomitant]
     Route: 048
     Dates: start: 20111026
  3. MUCINEX [Concomitant]
     Dosage: 600 MG, BID
  4. DULCOLAX [Concomitant]
     Dosage: UNK UKN, UNK
  5. CLOZARIL [Suspect]
     Indication: BIPOLAR DISORDER
     Dosage: 400 MG, UNK
     Route: 048
     Dates: end: 20111016
  6. OLANZAPINE [Concomitant]
     Route: 048
     Dates: start: 20111005, end: 20111012
  7. DIAZEPAM [Concomitant]
     Dosage: 5 MG OF 8 HOUR
     Dates: start: 20111017, end: 20111026
  8. VITAMIN B-12 [Concomitant]
     Dosage: 1000 MG/ DAILY
  9. LITHIUM [Suspect]
     Dosage: 900 MG,(300 MG AM -600 MG HS
     Route: 048
     Dates: start: 20111001, end: 20111017
  10. CLONAZEPAM [Concomitant]
     Dosage: 1 MG, TID
     Dates: start: 20111017, end: 20111026
  11. VITAMIN D [Concomitant]
     Dosage: 1000 UNITS DAILY
  12. ACETAMINOPHEN [Concomitant]
     Dosage: 650 MG/ 6 HOUR
     Dates: start: 20111016, end: 20111017
  13. DANTRIUM [Concomitant]
     Dosage: 140 MG/12 HOURS
     Dates: start: 20111018, end: 20111019

REACTIONS (10)
  - LETHARGY [None]
  - VOMITING [None]
  - LUNG INFILTRATION [None]
  - NEUROLEPTIC MALIGNANT SYNDROME [None]
  - MUSCULOSKELETAL STIFFNESS [None]
  - MENTAL DISORDER [None]
  - CONFUSIONAL STATE [None]
  - BLOOD CREATINE PHOSPHOKINASE INCREASED [None]
  - PNEUMONIA [None]
  - DELIRIUM [None]
